FAERS Safety Report 8153136-6 (Version None)
Quarter: 2012Q1

REPORT INFORMATION
  Report Type: 
  Country: None (occurrence: None)
  Receive Date: 20120103
  Receipt Date: 20120103
  Transmission Date: 20120608
  Serious: No
  Sender: FDA-Public Use
  Company Number: AE-2011-002900

PATIENT
  Age: 60 Year
  Sex: Male
  Weight: 67.1324 kg

DRUGS (5)
  1. PEGASYS [Concomitant]
  2. MECLIZINE [Concomitant]
  3. PROTONIX [Concomitant]
  4. INCIVEK [Suspect]
     Dosage: 2250 MG (750 MG,1 IN 8 HR),ORAL
     Route: 048
     Dates: start: 20111028
  5. RIBAVIRIN [Concomitant]

REACTIONS (5)
  - RASH PRURITIC [None]
  - ANORECTAL DISCOMFORT [None]
  - PYREXIA [None]
  - NAUSEA [None]
  - CHILLS [None]
